FAERS Safety Report 7961023-9 (Version None)
Quarter: 2011Q4

REPORT INFORMATION
  Report Type: 
  Country: None (occurrence: None)
  Receive Date: 20111207
  Receipt Date: 20111205
  Transmission Date: 20120403
  Serious: Yes (Hospitalization)
  Sender: FDA-Public Use
  Company Number: US-PFIZER INC-2011229407

PATIENT
  Sex: Male
  Weight: 63.492 kg

DRUGS (1)
  1. LYRICA [Suspect]
     Indication: BACK PAIN
     Dosage: 50 MG, 3X/DAY
     Route: 048
     Dates: start: 20110707, end: 20110711

REACTIONS (3)
  - POLLAKIURIA [None]
  - NAUSEA [None]
  - DRUG INEFFECTIVE [None]
